FAERS Safety Report 4937779-6 (Version None)
Quarter: 2006Q1

REPORT INFORMATION
  Report Type: 
  Country: None (occurrence: None)
  Receive Date: 20060309
  Receipt Date: 20060301
  Transmission Date: 20060701
  Serious: Yes (Other)
  Sender: FDA-Public Use
  Company Number: US-JNJFOC-20060301338

PATIENT
  Sex: Male
  Weight: 69.85 kg

DRUGS (4)
  1. FENTANYL [Suspect]
     Route: 062
  2. FENTANYL [Suspect]
     Route: 062
  3. FENTANYL [Suspect]
     Route: 062
  4. PREVACID [Concomitant]
     Route: 048

REACTIONS (10)
  - COMA [None]
  - DIZZINESS [None]
  - DRUG WITHDRAWAL SYNDROME [None]
  - HYPERHIDROSIS [None]
  - LETHARGY [None]
  - MUSCLE SPASMS [None]
  - MUSCLE TWITCHING [None]
  - SOMNOLENCE [None]
  - TREMOR [None]
  - VISION BLURRED [None]
